FAERS Safety Report 17601534 (Version 2)
Quarter: 2020Q2

REPORT INFORMATION
  Report Type: Spontaneous
  Country: AT (occurrence: AT)
  Receive Date: 20200331
  Receipt Date: 20200414
  Transmission Date: 20200713
  Serious: No
  Sender: FDA-Public Use
  Company Number: AT-AMGEN-AUTSP2020048585

PATIENT
  Age: 46 Year
  Sex: Female
  Weight: 59.5 kg

DRUGS (14)
  1. XGEVA [Suspect]
     Active Substance: DENOSUMAB
     Indication: HYPERCALCAEMIA
     Dosage: 60 MILLIGRAM
     Route: 065
     Dates: start: 20190911, end: 20190911
  2. FAMCICLOVIR. [Concomitant]
     Active Substance: FAMCICLOVIR
     Dosage: 500 MILLIGRAM, QD
  3. VITAMIN D3 [Suspect]
     Active Substance: CHOLECALCIFEROL
     Indication: MULTIPLE SCLEROSIS
     Dosage: 150000 INTERNATIONAL UNIT, QD
     Route: 065
     Dates: start: 20180322
  4. MAGNESIUM [Concomitant]
     Active Substance: MAGNESIUM
     Dosage: 600 MILLIGRAM, QD
  5. METHYL FOLATE [Concomitant]
     Active Substance: LEVOMEFOLATE CALCIUM
     Dosage: 100 MILLIGRAM, QD
  6. VITAMIN K2 [MENAQUINONE-7] [Concomitant]
     Dosage: 200 PICOGRAM, QD
  7. RIBOFLAVIN [Concomitant]
     Active Substance: RIBOFLAVIN
     Dosage: 200 MILLIGRAM, QD
  8. SELEN [SELENIUM] [Concomitant]
     Dosage: 200 PICOGRAM, QWK
  9. PYRIDOXAL 5 PHOSPHATE [Concomitant]
     Active Substance: PYRIDOXAL PHOSPHATE ANHYDROUS
     Dosage: 20 MILLIGRAM, QD
  10. ZINC. [Concomitant]
     Active Substance: ZINC
     Dosage: 15 MILLIGRAM, QD
  11. CALCIUM PANTOTHENATE [Suspect]
     Active Substance: CALCIUM PANTOTHENATE
     Indication: MULTIPLE SCLEROSIS
     Dosage: 500 MILLIGRAM, BID
     Route: 065
     Dates: start: 20190327, end: 20190911
  12. LYSIN [LISINOPRIL DIHYDRATE] [Concomitant]
     Dosage: 3 GRAM, QD
  13. FUROSEMIDE. [Concomitant]
     Active Substance: FUROSEMIDE
  14. CHOLINE [Concomitant]
     Active Substance: CHOLINE
     Dosage: 500 MILLIGRAM, QD

REACTIONS (3)
  - Drug ineffective for unapproved indication [Recovered/Resolved]
  - Off label use [Unknown]
  - Blood creatinine increased [Recovered/Resolved]

NARRATIVE: CASE EVENT DATE: 20190911
